FAERS Safety Report 4474964-4 (Version None)
Quarter: 2004Q3

REPORT INFORMATION
  Report Type: 
  Country: None (occurrence: None)
  Receive Date: 20040923
  Receipt Date: 20040601
  Transmission Date: 20050211
  Serious: Yes (Hospitalization, Other)
  Sender: FDA-Public Use
  Company Number: USA040669166

PATIENT
  Age: 74 Year
  Sex: Female

DRUGS (9)
  1. FORTEO [Suspect]
     Indication: OSTEOPOROSIS
     Dosage: 20 UG/1 DAY
     Dates: start: 20040201
  2. MAG-OX (MAGNESIUM OXIDE) [Concomitant]
  3. AMBIEN [Concomitant]
  4. PLAVIX [Concomitant]
  5. ATROVENT [Concomitant]
  6. LANOXIN [Concomitant]
  7. PRILOSEC [Concomitant]
  8. NITROSTAT [Concomitant]
  9. THYROXINE [Concomitant]

REACTIONS (1)
  - PNEUMONIA [None]
